FAERS Safety Report 17324192 (Version 1)
Quarter: 2020Q1

REPORT INFORMATION
  Report Type: Spontaneous
  Country: FR (occurrence: FR)
  Receive Date: 20200127
  Receipt Date: 20200127
  Transmission Date: 20200409
  Serious: Yes (Other)
  Sender: FDA-Public Use
  Company Number: FR-TEVA-2020-FR-1173781

PATIENT
  Age: 31 Year
  Sex: Female
  Weight: 52 kg

DRUGS (3)
  1. CLARITHROMYCINE [Suspect]
     Active Substance: CLARITHROMYCIN
     Indication: HELICOBACTER GASTRITIS
     Dosage: 100 MG PER DAY
     Route: 048
     Dates: start: 20191212, end: 20191225
  2. AMOXICILLINE [Suspect]
     Active Substance: AMOXICILLIN
     Indication: HELICOBACTER GASTRITIS
     Dosage: 2 GM
     Route: 048
     Dates: start: 20191212, end: 20191225
  3. METRONIDAZOLE. [Suspect]
     Active Substance: METRONIDAZOLE
     Indication: HELICOBACTER GASTRITIS
     Dosage: 1000 MG PER DAY
     Route: 048
     Dates: start: 20191212, end: 20191225

REACTIONS (1)
  - Epilepsy [Recovered/Resolved]

NARRATIVE: CASE EVENT DATE: 201912
